FAERS Safety Report 4758693-5 (Version None)
Quarter: 2005Q3

REPORT INFORMATION
  Report Type: 
  Country: None (occurrence: None)
  Receive Date: 20050830
  Receipt Date: 20050830
  Transmission Date: 20060218
  Serious: Yes (Hospitalization, Other)
  Sender: FDA-Public Use
  Company Number: None

PATIENT
  Sex: Female
  Weight: 104.8 kg

DRUGS (9)
  1. CYCLOPHOSPHAMIDE [Suspect]
     Indication: BREAST CANCER
     Dosage: SEE IMAGE
     Dates: start: 20031027, end: 20031027
  2. DOXORUBICIN HYDROCHLORIDE [Suspect]
     Dosage: SEE IMAGE
     Dates: start: 20031027, end: 20031027
  3. COMPAZINE [Concomitant]
  4. DECADRON [Concomitant]
  5. METAMUCIL [Concomitant]
  6. REGLAN [Concomitant]
  7. SYNTHROID [Concomitant]
  8. TOPROL-XL [Concomitant]
  9. ZOFRAN [Concomitant]

REACTIONS (2)
  - DEEP VEIN THROMBOSIS [None]
  - EMBOLISM [None]
